FAERS Safety Report 10389065 (Version 1)
Quarter: 2014Q3

REPORT INFORMATION
  Report Type: Spontaneous
  Country: IT (occurrence: IT)
  Receive Date: 20140817
  Receipt Date: 20140817
  Transmission Date: 20150326
  Serious: Yes (Hospitalization, Other)
  Sender: FDA-Public Use
  Company Number: PHHY2014IT096887

PATIENT
  Age: 73 Year
  Sex: Male
  Weight: 69 kg

DRUGS (9)
  1. MEXILETINE [Concomitant]
     Active Substance: MEXILETINE
  2. AMIODARONE [Interacting]
     Active Substance: AMIODARONE
     Route: 042
  3. ROSUVASTATIN [Concomitant]
     Active Substance: ROSUVASTATIN
     Dosage: 5 MG, UNK
  4. AMIODARONE [Suspect]
     Active Substance: AMIODARONE
     Indication: VENTRICULAR TACHYCARDIA
     Dosage: 400 MG, UNK
  5. WARFARIN [Interacting]
     Active Substance: WARFARIN
     Dosage: 5 MG, UNK
  6. AMIODARONE [Interacting]
     Active Substance: AMIODARONE
     Dosage: 400 MG, UNK
  7. CARDIOASPIRIN [Concomitant]
     Active Substance: ASPIRIN
     Dosage: 100 MG, UNK
  8. WARFARIN [Interacting]
     Active Substance: WARFARIN
     Dosage: 2.5 MG, UNK
  9. BISOPROLOL [Concomitant]
     Active Substance: BISOPROLOL
     Dosage: 1.25 MG, UNK

REACTIONS (4)
  - International normalised ratio increased [Unknown]
  - Hyperthyroidism [Unknown]
  - Ventricular tachycardia [Unknown]
  - Drug interaction [Unknown]
